FAERS Safety Report 6423045-9 (Version None)
Quarter: 2009Q4

REPORT INFORMATION
  Report Type: 
  Country: None (occurrence: None)
  Receive Date: 20091102
  Receipt Date: 20091016
  Transmission Date: 20100525
  Serious: Yes (Hospitalization, Other)
  Sender: FDA-Public Use
  Company Number: PHEH2009US13997

PATIENT
  Sex: Female

DRUGS (1)
  1. GLEEVEC [Suspect]
     Dosage: 400 MG
     Dates: start: 20080601, end: 20081005

REACTIONS (5)
  - AGEUSIA [None]
  - HYPOPHAGIA [None]
  - PULMONARY THROMBOSIS [None]
  - WALKING DISABILITY [None]
  - WEIGHT DECREASED [None]
